FAERS Safety Report 20617173 (Version 1)
Quarter: 2022Q1

REPORT INFORMATION
  Report Type: Spontaneous
  Country: ES (occurrence: ES)
  Receive Date: 20220321
  Receipt Date: 20220321
  Transmission Date: 20220424
  Serious: Yes (Other)
  Sender: FDA-Public Use
  Company Number: ES-KYOWAKIRIN-2022BKK003930

PATIENT

DRUGS (1)
  1. POTELIGEO [Suspect]
     Active Substance: MOGAMULIZUMAB-KPKC
     Indication: Cutaneous T-cell lymphoma stage IV
     Dosage: UNK, WEEKLY
     Route: 065
     Dates: start: 202101

REACTIONS (6)
  - Pemphigoid [Unknown]
  - Tendon rupture [Unknown]
  - Tendonitis [Unknown]
  - Blister [Unknown]
  - Skin lesion [Unknown]
  - Rash pruritic [Recovered/Resolved]

NARRATIVE: CASE EVENT DATE: 20210101
